FAERS Safety Report 8818947 (Version 1)
Quarter: 2012Q4

REPORT INFORMATION
  Report Type: Spontaneous
  Country: US (occurrence: None)
  Receive Date: 20121004
  Receipt Date: 20121004
  Transmission Date: 20130627
  Serious: No
  Sender: FDA-Public Use
  Company Number: None

PATIENT

DRUGS (2)
  1. LAMIVUDINE/ZIDOVUDINE [Suspect]
     Indication: ACCIDENTAL NEEDLE STICK
     Dosage: 2 tabs, twice daily, po
     Route: 048
     Dates: start: 20120920
  2. LAMIVUDINE/ZIDOVUDINE [Suspect]
     Dosage: 2 tabs, twice daily, po
     Route: 048
     Dates: start: 20120920

REACTIONS (7)
  - Dizziness [None]
  - Nausea [None]
  - Muscular weakness [None]
  - Eye pain [None]
  - Headache [None]
  - Diarrhoea [None]
  - Nervousness [None]
